FAERS Safety Report 23990359 (Version 3)
Quarter: 2024Q3

REPORT INFORMATION
  Report Type: Spontaneous
  Country: FR (occurrence: FR)
  Receive Date: 20240619
  Receipt Date: 20240822
  Transmission Date: 20241016
  Serious: Yes (Other)
  Sender: FRESENIUS KABI
  Company Number: FR-OPELLA-2024OHG019269

PATIENT
  Age: 70 Year
  Sex: Male

DRUGS (30)
  1. ACETAMINOPHEN [Suspect]
     Active Substance: ACETAMINOPHEN
     Indication: Product used for unknown indication
     Dosage: UNK?FORM OF ADMIN.: UNKNOWN
  2. ACETAMINOPHEN [Suspect]
     Active Substance: ACETAMINOPHEN
     Dosage: UNK?ROUTE OF ADMIN: UNKNOWN?FORM OF ADMIN: UNKNOWN
  3. ACETAMINOPHEN [Suspect]
     Active Substance: ACETAMINOPHEN
     Dosage: UNK
     Route: 065
  4. SODIUM BICARBONATE [Suspect]
     Active Substance: SODIUM BICARBONATE
     Indication: Product used for unknown indication
     Dosage: UNK?FORM OF ADMIN.: UNKNOWN
  5. SODIUM BICARBONATE [Suspect]
     Active Substance: SODIUM BICARBONATE
     Dosage: FOA-UNKNOWN
  6. SODIUM BICARBONATE [Suspect]
     Active Substance: SODIUM BICARBONATE
     Dosage: UNK
     Route: 065
  7. CEFTRIAXONE [Suspect]
     Active Substance: CEFTRIAXONE\CEFTRIAXONE SODIUM
     Indication: Escherichia sepsis
     Dosage: UNK?FORM OF ADMIN.: UNKNOWN
  8. CEFTRIAXONE [Suspect]
     Active Substance: CEFTRIAXONE\CEFTRIAXONE SODIUM
     Indication: Urosepsis
     Dosage: UNK
     Route: 065
  9. COTRIMOXAZOLE [Suspect]
     Active Substance: SULFAMETHOXAZOLE\TRIMETHOPRIM
     Indication: Urosepsis
     Dosage: UNK?FORM OF ADMIN.: SOLUTION FOR INJECTION
  10. COTRIMOXAZOLE [Suspect]
     Active Substance: SULFAMETHOXAZOLE\TRIMETHOPRIM
     Indication: Escherichia sepsis
     Dosage: FOA: SOLUTION FOR INJECTION
  11. COTRIMOXAZOLE [Suspect]
     Active Substance: SULFAMETHOXAZOLE\TRIMETHOPRIM
     Dosage: FOA: SOLUTION FOR INJECTION
  12. COTRIMOXAZOLE [Suspect]
     Active Substance: SULFAMETHOXAZOLE\TRIMETHOPRIM
     Dosage: UNK
     Route: 065
  13. TRIMETHOPRIM [Suspect]
     Active Substance: TRIMETHOPRIM
     Indication: Escherichia sepsis
     Dosage: UNK?FORM OF ADMIN.: SOLUTION FOR INJECTION
  14. TRIMETHOPRIM [Suspect]
     Active Substance: TRIMETHOPRIM
     Indication: Urosepsis
     Dosage: UNK
     Route: 065
  15. BISOPROLOL FUMARATE [Suspect]
     Active Substance: BISOPROLOL FUMARATE
     Indication: Product use in unapproved indication
     Dosage: UNK?FORM OF ADMIN.: UNKNOWN
  16. BISOPROLOL FUMARATE [Suspect]
     Active Substance: BISOPROLOL FUMARATE
     Dosage: UNK
  17. LANSOPRAZOLE [Suspect]
     Active Substance: LANSOPRAZOLE
     Indication: Product used for unknown indication
     Dosage: UNK?FORM OF ADMIN.: UNKNOWN
  18. LANSOPRAZOLE [Suspect]
     Active Substance: LANSOPRAZOLE
     Dosage: UNK
     Route: 065
  19. RAMIPRIL [Suspect]
     Active Substance: RAMIPRIL
     Indication: Product use in unapproved indication
     Dosage: UNK?FORM OF ADMIN.: UNKNOWN
  20. RAMIPRIL [Suspect]
     Active Substance: RAMIPRIL
     Indication: Product used for unknown indication
     Dosage: UNK
     Route: 065
  21. ASPIRIN [Suspect]
     Active Substance: ASPIRIN
     Indication: Product used for unknown indication
     Dosage: UNK?FORM OF ADMIN.: UNKNOWN
  22. ASPIRIN [Suspect]
     Active Substance: ASPIRIN
     Dosage: FOA-UNKNOWN
     Route: 065
  23. ASPIRIN [Suspect]
     Active Substance: ASPIRIN
     Dosage: UNK
     Route: 065
  24. AMIKACIN [Suspect]
     Active Substance: AMIKACIN
     Indication: Urosepsis
     Dosage: UNK?FORM OF ADMIN.: UNKNOWN
  25. AMIKACIN [Suspect]
     Active Substance: AMIKACIN
     Indication: Escherichia sepsis
     Dosage: UNK
     Route: 065
  26. BISOPROLOL [Suspect]
     Active Substance: BISOPROLOL\BISOPROLOL FUMARATE
     Indication: Product used for unknown indication
  27. BISOPROLOL [Suspect]
     Active Substance: BISOPROLOL\BISOPROLOL FUMARATE
     Indication: Product use in unapproved indication
     Dosage: UNK
  28. BISOPROLOL [Suspect]
     Active Substance: BISOPROLOL\BISOPROLOL FUMARATE
     Dosage: UNK
  29. BISOPROLOL [Suspect]
     Active Substance: BISOPROLOL\BISOPROLOL FUMARATE
     Dosage: UNK
  30. BISOPROLOL [Suspect]
     Active Substance: BISOPROLOL\BISOPROLOL FUMARATE
     Dosage: UNK
     Route: 065

REACTIONS (1)
  - Acute febrile neutrophilic dermatosis [Recovered/Resolved]
